FAERS Safety Report 14687913 (Version 2)
Quarter: 2018Q2

REPORT INFORMATION
  Report Type: Report from Study
  Country: None (occurrence: ZA)
  Receive Date: 20180328
  Receipt Date: 20180404
  Transmission Date: 20180711
  Serious: Yes (Hospitalization)
  Sender: FDA-Public Use
  Company Number: ZA-ABBVIE-18K-143-2298804-00

PATIENT
  Age: 42 Year
  Sex: Male

DRUGS (1)
  1. HUMIRA [Suspect]
     Active Substance: ADALIMUMAB
     Indication: RHEUMATOID ARTHRITIS
     Route: 058
     Dates: start: 20180306, end: 20180320

REACTIONS (5)
  - Sleep apnoea syndrome [Unknown]
  - Pharyngeal haemorrhage [Unknown]
  - Throat tightness [Unknown]
  - Enlarged uvula [Unknown]
  - Arthropod bite [Unknown]

NARRATIVE: CASE EVENT DATE: 201803
